FAERS Safety Report 6284594-X (Version None)
Quarter: 2009Q3

REPORT INFORMATION
  Report Type: 
  Country: None (occurrence: None)
  Receive Date: 20090727
  Receipt Date: 20090624
  Transmission Date: 20100115
  Serious: No
  Sender: FDA-Public Use
  Company Number: US-ALEXION-A200900523

PATIENT
  Sex: Male

DRUGS (9)
  1. SOLIRIS [Suspect]
     Indication: PAROXYSMAL NOCTURNAL HAEMOGLOBINURIA
     Dosage: 600 MG, QW
     Route: 042
     Dates: start: 20070419, end: 20070510
  2. SOLIRIS [Suspect]
     Dosage: 900 MG, Q2W
     Route: 042
     Dates: start: 20070517
  3. FOLIC ACID [Concomitant]
     Dosage: 800 UG, QD
     Route: 048
  4. B COMPLEX                          /00212701/ [Concomitant]
     Dosage: UNK
     Route: 048
  5. LEXAPRO [Concomitant]
     Dosage: 10 MG, QD
     Route: 048
  6. DESFERAL                           /00062903/ [Concomitant]
     Dosage: 2 G, 2/WK
  7. MAGNESIUM OXIDE [Concomitant]
     Dosage: 400 MG, TID
     Route: 048
  8. DILAUDID [Concomitant]
     Dosage: 2 MG, 1-2 Q4-6H, PRN UNK
     Route: 048
  9. ATIVAN [Concomitant]
     Dosage: 1 MG, Q12H, PRN
     Route: 048

REACTIONS (3)
  - HAEMATOCRIT DECREASED [None]
  - HAEMOGLOBIN DECREASED [None]
  - RED BLOOD CELL COUNT DECREASED [None]
